FAERS Safety Report 9132944 (Version 4)
Quarter: 2013Q4

REPORT INFORMATION
  Report Type: Report from Study
  Country: JP (occurrence: JP)
  Receive Date: 20130301
  Receipt Date: 20131230
  Transmission Date: 20140711
  Serious: Yes (Death, Life-Threatening, Hospitalization, Other)
  Sender: FDA-Public Use
  Company Number: JP-009507513-2012SP028234

PATIENT
  Age: 76 Year
  Sex: Male
  Weight: 45 kg

DRUGS (19)
  1. TEMODAL INFUSION 100MG [Suspect]
     Indication: GLIOBLASTOMA MULTIFORME
     Dosage: 150 MG/M2, QD
     Route: 041
     Dates: start: 20120227, end: 20120302
  2. TEMODAL INFUSION 100MG [Suspect]
     Dosage: 150 MG/M2, QD
     Route: 041
     Dates: start: 20120130, end: 20120203
  3. TEMODAL [Suspect]
     Indication: GLIOBLASTOMA MULTIFORME
     Dosage: DAILY DOSE UNKNOWN
     Route: 048
     Dates: start: 20091009, end: 20111205
  4. INTERFERON BETA [Concomitant]
     Dosage: TOTAL DAILY DOSE UNKNOWN
     Route: 041
     Dates: start: 20120130, end: 20120130
  5. INTERFERON BETA [Concomitant]
     Dosage: NTOTAL DAILY DOSE UNKNOW
     Route: 041
     Dates: start: 20120227, end: 20120227
  6. HYSERENIN [Concomitant]
     Dosage: TOTAL DAILY DOSE UNKNOWN
     Route: 048
     Dates: start: 20090909, end: 20120423
  7. TAKEPRON [Concomitant]
     Indication: PROPHYLAXIS
     Dosage: TOTAL DAILY DOSE UNKNOWN
     Route: 048
     Dates: start: 20120103, end: 20120423
  8. BENZBROMARONE [Concomitant]
     Dosage: TOTAL DAILY DOSE UNKNOWN
     Route: 048
     Dates: end: 20120423
  9. ARICEPT D [Concomitant]
     Dosage: TOTAL DAILY DOSE UNKNOW
     Route: 048
     Dates: end: 20120423
  10. DEXAMETHASONE [Concomitant]
     Dosage: TOTAL DAILY DOSE UNKNOW
     Route: 048
     Dates: start: 20120118, end: 20120423
  11. NASEA [Concomitant]
     Indication: PROPHYLAXIS
     Dosage: TOTAL DAILY DOSE UNKNOWN
     Route: 048
     Dates: start: 20120130, end: 20120203
  12. NASEA [Concomitant]
     Dosage: TOTAL DAILY DOSE UNKNOWN
     Route: 048
     Dates: start: 20120227, end: 20120302
  13. CALONAL [Concomitant]
     Indication: PROPHYLAXIS
     Dosage: NTOTAL DAILY DOSE UNKNOW
     Route: 048
     Dates: start: 20120130, end: 20120130
  14. CALONAL [Concomitant]
     Dosage: TOTAL DAILY DOSE UNKNOWN
     Route: 048
     Dates: start: 20120227, end: 20120227
  15. MEBENDAZOLE [Concomitant]
     Dosage: TOTAL DAILY DOSE UNKNOW
     Route: 048
     Dates: start: 20120210, end: 20120420
  16. FRUCTOSE (+) GLYCERIN (+) SODIUM CHLORIDE [Concomitant]
     Dosage: TOTAL DAILY DOSE UNKNOWN
     Route: 041
     Dates: start: 20120329, end: 20120423
  17. KEPPRA [Concomitant]
     Indication: CONVULSION
     Dosage: TOTAL DAILY DOSE UNKNOWN
     Route: 048
     Dates: start: 20120111, end: 20120423
  18. MUCODYNE [Concomitant]
     Indication: BRONCHITIS
     Dosage: TOTAL DAILY DOSE UNKNOWN
     Route: 048
     Dates: start: 20120107, end: 20120423
  19. MUCOSOLVAN [Concomitant]
     Indication: BRONCHITIS
     Dosage: TOTAL DAILY DOSE UNKNOW
     Route: 048
     Dates: start: 20120107, end: 20120423

REACTIONS (12)
  - Disease progression [Fatal]
  - Lymphocyte count decreased [Recovered/Resolved]
  - Hypernatraemia [Recovered/Resolved]
  - Pneumonia [Not Recovered/Not Resolved]
  - Platelet count decreased [Recovered/Resolved]
  - Convulsion [Recovered/Resolved]
  - Bronchitis [Recovering/Resolving]
  - Anaemia [Not Recovered/Not Resolved]
  - White blood cell count increased [Recovering/Resolving]
  - Nausea [Recovering/Resolving]
  - Pyrexia [Recovered/Resolved]
  - Device related infection [Recovered/Resolved]
